FAERS Safety Report 17066010 (Version 1)
Quarter: 2019Q4

REPORT INFORMATION
  Report Type: Spontaneous
  Country: US (occurrence: US)
  Receive Date: 20191122
  Receipt Date: 20191122
  Transmission Date: 20200122
  Serious: No
  Sender: FDA-Public Use
  Company Number: US-PERRIGO-19US007146

PATIENT
  Sex: Male
  Weight: 74.38 kg

DRUGS (9)
  1. POLYETHYLENE GLYCOL 3350. [Suspect]
     Active Substance: POLYETHYLENE GLYCOL 3350
     Indication: CONSTIPATION
     Dosage: 17 G, QD
     Route: 048
     Dates: start: 2017
  2. SERTRALINE [Concomitant]
     Active Substance: SERTRALINE HYDROCHLORIDE
     Indication: STRESS
     Dosage: UNK
     Route: 065
  3. MYRBETRIQ [Concomitant]
     Active Substance: MIRABEGRON
     Indication: PROSTATOMEGALY
     Dosage: UNK
     Route: 065
     Dates: start: 2019
  4. FISH OIL [Concomitant]
     Active Substance: FISH OIL
     Indication: BLOOD CHOLESTEROL ABNORMAL
     Dosage: UNK
     Route: 065
  5. FISH OIL [Concomitant]
     Active Substance: FISH OIL
     Indication: ROUTINE HEALTH MAINTENANCE
  6. POLYETHYLENE GLYCOL 3350. [Suspect]
     Active Substance: POLYETHYLENE GLYCOL 3350
     Dosage: 8.5 G, QD
     Route: 048
  7. MIRTAZAPINE. [Concomitant]
     Active Substance: MIRTAZAPINE
     Indication: STRESS
     Route: 065
  8. FIBRE, DIETARY [Concomitant]
     Active Substance: PSYLLIUM HUSK
     Indication: CONSTIPATION
     Dosage: UNK
     Route: 065
  9. ATORVASTATIN AN [Concomitant]
     Indication: BLOOD CHOLESTEROL ABNORMAL
     Dosage: UNK
     Route: 065

REACTIONS (5)
  - Balance disorder [Not Recovered/Not Resolved]
  - Incorrect product administration duration [Unknown]
  - Dyschezia [Unknown]
  - Dizziness [Not Recovered/Not Resolved]
  - Underdose [Recovered/Resolved]

NARRATIVE: CASE EVENT DATE: 2017
